FAERS Safety Report 7048924-3 (Version None)
Quarter: 2010Q4

REPORT INFORMATION
  Report Type: 
  Country: None (occurrence: None)
  Receive Date: 20101008
  Receipt Date: 20100922
  Transmission Date: 20110411
  Serious: Yes (Disabling, Other)
  Sender: FDA-Public Use
  Company Number: ACO_01914_2010

PATIENT
  Sex: Female
  Weight: 51.7101 kg

DRUGS (5)
  1. AMPYRA [Suspect]
     Indication: GAIT DISTURBANCE
     Dosage: (10 MG BID ORAL)
     Route: 048
     Dates: start: 20100812, end: 20100821
  2. SYNTHROID [Concomitant]
  3. METOPROLOL [Concomitant]
  4. DIOVAN [Concomitant]
  5. FORTEO [Concomitant]

REACTIONS (9)
  - ABASIA [None]
  - ASTHENIA [None]
  - DISORIENTATION [None]
  - DIZZINESS [None]
  - DRUG INEFFECTIVE [None]
  - FATIGUE [None]
  - NAUSEA [None]
  - SPEECH DISORDER [None]
  - VOMITING [None]
